FAERS Safety Report 7515621-7 (Version None)
Quarter: 2011Q2

REPORT INFORMATION
  Report Type: 
  Country: None (occurrence: None)
  Receive Date: 20110601
  Receipt Date: 20100712
  Transmission Date: 20111010
  Serious: Yes (Death, Other)
  Sender: FDA-Public Use
  Company Number: US-PFIZER INC-2010041287

PATIENT
  Sex: Female

DRUGS (1)
  1. CHANTIX [Suspect]
     Dosage: ) STARTER PACK AND A MONTH REFILL, UNK
     Dates: start: 20070901, end: 20080601

REACTIONS (4)
  - DEPRESSION [None]
  - MOOD SWINGS [None]
  - COMPLETED SUICIDE [None]
  - ASTHENIA [None]
